FAERS Safety Report 23191594 (Version 3)
Quarter: 2025Q2

REPORT INFORMATION
  Report Type: Spontaneous
  Country: DE (occurrence: DE)
  Receive Date: 20231116
  Receipt Date: 20250620
  Transmission Date: 20250717
  Serious: Yes (Other)
  Sender: AMGEN
  Company Number: DE-002147023-NVSC2023DE201047

PATIENT
  Age: 54 Year
  Sex: Female
  Weight: 80 kg

DRUGS (8)
  1. AIMOVIG [Suspect]
     Active Substance: ERENUMAB-AOOE
     Indication: Migraine
     Dosage: EVERY 4 WEEKS
     Route: 058
     Dates: start: 20230323, end: 20230323
  2. AIMOVIG [Suspect]
     Active Substance: ERENUMAB-AOOE
     Dosage: EVERY 4 WEEKS
     Route: 058
     Dates: start: 20230420, end: 20230420
  3. AIMOVIG [Suspect]
     Active Substance: ERENUMAB-AOOE
     Dosage: EVERY 4 WEEKS
     Route: 058
     Dates: start: 20230518, end: 20230518
  4. AIMOVIG [Suspect]
     Active Substance: ERENUMAB-AOOE
     Dosage: EVERY 4 WEEKS
     Route: 058
     Dates: start: 20230615, end: 20230615
  5. AIMOVIG [Suspect]
     Active Substance: ERENUMAB-AOOE
     Dosage: EVERY 4 WEEKS
     Route: 058
     Dates: start: 20230713, end: 20230713
  6. AIMOVIG [Suspect]
     Active Substance: ERENUMAB-AOOE
     Dosage: EVERY 4 WEEKS
     Route: 058
     Dates: start: 20230810, end: 20230810
  7. AIMOVIG [Suspect]
     Active Substance: ERENUMAB-AOOE
     Dosage: EVERY 4 WEEKS
     Route: 058
     Dates: start: 20230907, end: 20230907
  8. AIMOVIG [Suspect]
     Active Substance: ERENUMAB-AOOE
     Dosage: EVERY 4 WEEKS
     Route: 058
     Dates: start: 20231005

REACTIONS (21)
  - Type I hypersensitivity [Recovered/Resolved]
  - Type I hypersensitivity [Recovered/Resolved]
  - Anaphylactic reaction [Unknown]
  - Anaphylactic reaction [Recovered/Resolved]
  - Pain [Recovered/Resolved]
  - Injection site swelling [Recovered/Resolved]
  - Swelling [Recovered/Resolved]
  - Feeling abnormal [Unknown]
  - Swelling [Unknown]
  - Hyperthermia [Unknown]
  - Skin oedema [Unknown]
  - Constipation [Recovered/Resolved]
  - Injection site erythema [Recovered/Resolved]
  - Injection site pruritus [Recovered/Resolved]
  - Injection site erythema [Recovered/Resolved]
  - Pruritus [Recovered/Resolved]
  - Injection site erythema [Recovered/Resolved]
  - Pruritus [Recovered/Resolved]
  - Injection site pain [Unknown]
  - Injection site erythema [Unknown]
  - Pruritus [Recovered/Resolved]

NARRATIVE: CASE EVENT DATE: 20230701
